FAERS Safety Report 20917852 (Version 1)
Quarter: 2022Q2

REPORT INFORMATION
  Report Type: Spontaneous
  Country: US (occurrence: US)
  Receive Date: 20220606
  Receipt Date: 20220606
  Transmission Date: 20220721
  Serious: Yes (Other)
  Sender: FDA-Public Use
  Company Number: US-AMGEN-USASP2022094336

PATIENT
  Age: 85 Year
  Sex: Male

DRUGS (4)
  1. FILGRASTIM [Suspect]
     Active Substance: FILGRASTIM
     Indication: Prophylaxis
     Route: 065
  2. DECITABINE [Concomitant]
     Active Substance: DECITABINE
  3. VENETOCLAX [Concomitant]
     Active Substance: VENETOCLAX
     Dosage: 100 MILLIGRAM, QD FOR 21 DAYS
  4. POSACONAZOLE [Concomitant]
     Active Substance: POSACONAZOLE

REACTIONS (4)
  - Bacteraemia [Recovered/Resolved]
  - Gastrointestinal haemorrhage [Unknown]
  - Acute myeloid leukaemia [Unknown]
  - Leukocytosis [Recovered/Resolved]
